FAERS Safety Report 8175173-8 (Version None)
Quarter: 2012Q1

REPORT INFORMATION
  Report Type: 
  Country: None (occurrence: None)
  Receive Date: 20120229
  Receipt Date: 20120226
  Transmission Date: 20120608
  Serious: No
  Sender: FDA-Public Use
  Company Number: PHHY2011US56289

PATIENT
  Sex: Female
  Weight: 84.354 kg

DRUGS (5)
  1. GILENYA [Suspect]
     Indication: RELAPSING-REMITTING MULTIPLE SCLEROSIS
     Dosage: 0.5 MG, QD
     Route: 048
     Dates: start: 20110602
  2. AMBIEN CR [Concomitant]
     Indication: INSOMNIA
     Dosage: 12.5 MG, UNK
     Dates: start: 20110111
  3. STEROIDS NOS [Concomitant]
     Dosage: UNK UKN, OT
     Dates: end: 20120224
  4. WELLBUTRIN [Concomitant]
     Indication: DEPRESSION
     Dosage: 1 TAB 9 AM
     Route: 048
     Dates: start: 20110111
  5. KLONOPIN [Concomitant]
     Indication: TREMOR
     Dosage: 1 MG/DAILY
     Dates: start: 20091109

REACTIONS (8)
  - BLOOD PRESSURE DECREASED [None]
  - RASH [None]
  - PAIN [None]
  - FATIGUE [None]
  - HEADACHE [None]
  - CHEST PAIN [None]
  - ABDOMINAL PAIN UPPER [None]
  - DYSPNOEA [None]
